FAERS Safety Report 14186054 (Version 1)
Quarter: 2017Q4

REPORT INFORMATION
  Report Type: Spontaneous
  Country: SK (occurrence: SK)
  Receive Date: 20171114
  Receipt Date: 20171114
  Transmission Date: 20180321
  Serious: Yes (Disabling)
  Sender: FDA-Public Use
  Company Number: SK-ROCHE-2021269

PATIENT
  Age: 67 Year
  Sex: Male
  Weight: 42 kg

DRUGS (7)
  1. TOCILIZUMAB. [Suspect]
     Active Substance: TOCILIZUMAB
     Indication: RHEUMATOID ARTHRITIS
     Route: 042
     Dates: start: 201306, end: 201708
  2. PROLIA [Concomitant]
     Active Substance: DENOSUMAB
     Indication: OSTEOPOROSIS
     Route: 058
     Dates: start: 2016, end: 2017
  3. CALTRATE [Concomitant]
     Active Substance: CALCIUM CARBONATE
     Indication: OSTEOPOROSIS
     Route: 048
     Dates: start: 2012
  4. ZODAC [Concomitant]
     Active Substance: CETIRIZINE HYDROCHLORIDE
     Indication: ASTHMA
     Route: 048
     Dates: start: 2012
  5. VIGANTOL [Concomitant]
     Active Substance: CHOLECALCIFEROL
     Indication: OSTEOPOROSIS
     Dosage: LONGTERM
     Route: 048
     Dates: start: 2012
  6. PYRIDOXIN [Concomitant]
     Active Substance: PYRIDOXINE
     Dosage: LONGTERM
     Route: 048
     Dates: start: 2013
  7. ENELBIN (SLOVAKIA) [Concomitant]
     Indication: VERTIGO
     Dosage: LONGTERM
     Route: 048
     Dates: start: 2015

REACTIONS (2)
  - Ureteric cancer [Not Recovered/Not Resolved]
  - Bladder cancer [Not Recovered/Not Resolved]

NARRATIVE: CASE EVENT DATE: 201708
